FAERS Safety Report 23114723 (Version 1)
Quarter: 2023Q4

REPORT INFORMATION
  Report Type: Spontaneous
  Country: US (occurrence: US)
  Receive Date: 20231027
  Receipt Date: 20231027
  Transmission Date: 20240110
  Serious: Yes (Hospitalization)
  Sender: FDA-Public Use
  Company Number: US-MYLANLABS-2023M1112423

PATIENT
  Age: 41 Year
  Sex: Male

DRUGS (1)
  1. METHOTREXATE [Suspect]
     Active Substance: METHOTREXATE
     Indication: Product used for unknown indication
     Dosage: 20 MILLIGRAM, RECEIVED ONE DOSE
     Route: 065

REACTIONS (8)
  - Neutropenic sepsis [Recovering/Resolving]
  - Bone marrow failure [Recovering/Resolving]
  - Pancytopenia [Recovering/Resolving]
  - Multiple organ dysfunction syndrome [Unknown]
  - Oesophageal candidiasis [Unknown]
  - Klebsiella bacteraemia [Unknown]
  - Endocarditis [Unknown]
  - Toxicity to various agents [Recovering/Resolving]
